FAERS Safety Report 5574365-1 (Version None)
Quarter: 2007Q4

REPORT INFORMATION
  Report Type: 
  Country: None (occurrence: None)
  Receive Date: 20071227
  Receipt Date: 20071220
  Transmission Date: 20080405
  Serious: Yes (Other)
  Sender: FDA-Public Use
  Company Number: US-JNJFOC-20071205423

PATIENT
  Age: 5 Year
  Sex: Female
  Weight: 17.69 kg

DRUGS (4)
  1. CHILDREN'S TYLENOL LIQUID GRAPE SPLASH [Suspect]
     Indication: NASOPHARYNGITIS
     Route: 048
  2. CHILDREN'S TYLENOL LIQUID GRAPE SPLASH [Suspect]
     Indication: RHINORRHOEA
     Route: 048
  3. INSULIN [Concomitant]
     Indication: TYPE 1 DIABETES MELLITUS
  4. MULTI-VITAMIN [Concomitant]
     Indication: ROUTINE HEALTH MAINTENANCE

REACTIONS (1)
  - BLOOD GLUCOSE INCREASED [None]
